FAERS Safety Report 19153678 (Version 2)
Quarter: 2021Q2

REPORT INFORMATION
  Report Type: Spontaneous
  Country: FR (occurrence: FR)
  Receive Date: 20210419
  Receipt Date: 20210527
  Transmission Date: 20210717
  Serious: Yes (Hospitalization)
  Sender: FDA-Public Use
  Company Number: FR-GLAXOSMITHKLINE-FR2021082608

PATIENT
  Age: 54 Year
  Sex: Male

DRUGS (4)
  1. ZELITREX [Suspect]
     Active Substance: VALACYCLOVIR HYDROCHLORIDE
     Indication: HERPES VIRUS INFECTION
     Dosage: 3 G, QD
     Route: 042
     Dates: start: 202101, end: 202102
  2. PYOSTACINE [Concomitant]
     Active Substance: PRISTINAMYCIN
     Indication: SKIN INFECTION
     Dosage: UNK
     Route: 065
     Dates: start: 20210205, end: 20210215
  3. ZELITREX [Suspect]
     Active Substance: VALACYCLOVIR HYDROCHLORIDE
     Indication: HERPES VIRUS INFECTION
     Dosage: 1000 MG, QD
     Route: 048
     Dates: start: 202102, end: 20210308
  4. BACTRIM [Suspect]
     Active Substance: SULFAMETHOXAZOLE\TRIMETHOPRIM
     Indication: SKIN INFECTION
     Dosage: 400 MG
     Route: 048
     Dates: start: 20210228, end: 20210308

REACTIONS (2)
  - Pyrexia [Recovered/Resolved]
  - Rash maculo-papular [Unknown]

NARRATIVE: CASE EVENT DATE: 20210307
